FAERS Safety Report 6296699-8 (Version None)
Quarter: 2009Q3

REPORT INFORMATION
  Report Type: 
  Country: None (occurrence: None)
  Receive Date: 20090804
  Receipt Date: 20090723
  Transmission Date: 20100115
  Serious: Yes (Other)
  Sender: FDA-Public Use
  Company Number: ES-ELI_LILLY_AND_COMPANY-ES200907001441

PATIENT
  Age: 40 Year
  Sex: Male

DRUGS (5)
  1. BYETTA [Suspect]
     Indication: DIABETES MELLITUS
     Dosage: 5 UG, UNKNOWN
     Route: 058
     Dates: start: 20090625, end: 20090702
  2. METFORMIN HCL [Concomitant]
     Dosage: 850,  EACH 12 HOURS
     Route: 065
  3. GEMFIBROZILO [Concomitant]
     Dosage: 900 MG, DAILY (1/D)
     Route: 065
  4. LEVOTIROXINA [Concomitant]
     Dosage: 125 MG, DAILY (1/D)
     Route: 065
  5. INSULIN [Concomitant]
     Dosage: UNK, UNKNOWN
     Route: 065
     Dates: start: 20090706

REACTIONS (4)
  - BLOOD AMYLASE INCREASED [None]
  - EYELID OEDEMA [None]
  - LIPASE INCREASED [None]
  - OEDEMA PERIPHERAL [None]
